FAERS Safety Report 4864069-2 (Version None)
Quarter: 2005Q4

REPORT INFORMATION
  Report Type: 
  Country: None (occurrence: None)
  Receive Date: 20051222
  Receipt Date: 20051214
  Transmission Date: 20060501
  Serious: Yes (Other)
  Sender: FDA-Public Use
  Company Number: US-AMGEN-US161419

PATIENT
  Sex: Male
  Weight: 83.5 kg

DRUGS (2)
  1. ARANESP [Suspect]
     Indication: ANAEMIA OF MALIGNANT DISEASE
     Dates: start: 20051029, end: 20051214
  2. IRON [Concomitant]
     Dates: start: 20051014

REACTIONS (2)
  - DRUG INEFFECTIVE [None]
  - THERAPY NON-RESPONDER [None]
